FAERS Safety Report 6927525-9 (Version None)
Quarter: 2010Q3

REPORT INFORMATION
  Report Type: 
  Country: None (occurrence: None)
  Receive Date: 20100817
  Receipt Date: 20100726
  Transmission Date: 20110219
  Serious: Yes (Other)
  Sender: FDA-Public Use
  Company Number: ES-SHIRE-SPV1-2010-01422

PATIENT
  Age: 63 Year
  Sex: Female

DRUGS (3)
  1. XAGRID [Suspect]
     Route: 048
  2. PLAVIX [Concomitant]
     Indication: PRODUCT USED FOR UNKNOWN INDICATION
  3. ASPIRIN [Concomitant]
     Indication: PRODUCT USED FOR UNKNOWN INDICATION

REACTIONS (3)
  - INTESTINAL ULCER [None]
  - ISCHAEMIC ULCER [None]
  - RECTAL HAEMORRHAGE [None]
